FAERS Safety Report 24722657 (Version 1)
Quarter: 2024Q4

REPORT INFORMATION
  Report Type: Spontaneous
  Country: JP (occurrence: JP)
  Receive Date: 20241211
  Receipt Date: 20241211
  Transmission Date: 20250115
  Serious: Yes (Hospitalization)
  Sender: JOHNSON AND JOHNSON
  Company Number: JP-JNJFOC-20241224310

PATIENT
  Age: 56 Year
  Sex: Female
  Weight: 75.6 kg

DRUGS (11)
  1. RISPERDAL [Suspect]
     Active Substance: RISPERIDONE
     Indication: Schizoaffective disorder
     Route: 048
  2. LITHIUM CARBONATE [Suspect]
     Active Substance: LITHIUM CARBONATE
     Indication: Product used for unknown indication
     Dosage: 600MG/DAY
     Route: 048
  3. ARIPIPRAZOLE [Concomitant]
     Active Substance: ARIPIPRAZOLE
     Indication: Product used for unknown indication
     Route: 048
  4. VALPROATE SODIUM [Concomitant]
     Active Substance: VALPROATE SODIUM
     Indication: Product used for unknown indication
     Route: 048
  5. RAMELTEON [Concomitant]
     Active Substance: RAMELTEON
     Indication: Product used for unknown indication
     Route: 048
  6. LOPERAMIDE HYDROCHLORIDE [Concomitant]
     Active Substance: LOPERAMIDE HYDROCHLORIDE
     Indication: Product used for unknown indication
     Route: 048
  7. SEMAGLUTIDE(GENETICAL RECOMBINATION) [Concomitant]
     Indication: Product used for unknown indication
     Route: 065
  8. DAPAGLIFLOZIN PROPANEDIOL [Concomitant]
     Active Substance: DAPAGLIFLOZIN PROPANEDIOL
     Indication: Product used for unknown indication
     Route: 048
  9. FEBUXOSTAT [Concomitant]
     Active Substance: FEBUXOSTAT
     Indication: Product used for unknown indication
     Route: 048
  10. FLUVASTATIN [Concomitant]
     Active Substance: FLUVASTATIN SODIUM
     Indication: Product used for unknown indication
     Route: 048
  11. CANDESARTAN [Concomitant]
     Active Substance: CANDESARTAN
     Indication: Product used for unknown indication
     Route: 048

REACTIONS (1)
  - Acute kidney injury [Unknown]
